FAERS Safety Report 8967692 (Version 1)
Quarter: 2012Q4

REPORT INFORMATION
  Report Type: Spontaneous
  Country: US (occurrence: None)
  Receive Date: 20121206
  Receipt Date: 20121206
  Transmission Date: 20130627
  Serious: Yes (Hospitalization)
  Sender: FDA-Public Use
  Company Number: VAL_01021_2012

PATIENT
  Sex: Female

DRUGS (4)
  1. METOPROLOL [Suspect]
     Indication: HYPERTENSION
     Dosage: 25 mg every other day, oral
     Route: 048
  2. LISINOPRIL [Concomitant]
  3. AMLODIPINE [Concomitant]
  4. TUMS /00193601/ [Concomitant]

REACTIONS (7)
  - Hypertension [None]
  - Arthritis [None]
  - Gastritis [None]
  - Abasia [None]
  - Knee operation [None]
  - Infection [None]
  - Knee arthroplasty [None]
